FAERS Safety Report 10031671 (Version 1)
Quarter: 2014Q1

REPORT INFORMATION
  Report Type: Spontaneous
  Country: US (occurrence: US)
  Receive Date: 20140324
  Receipt Date: 20140324
  Transmission Date: 20141002
  Serious: No
  Sender: FDA-Public Use
  Company Number: US-PFIZER INC-2014083490

PATIENT
  Age: 72 Year
  Sex: Female
  Weight: 86.17 kg

DRUGS (4)
  1. CELEBREX [Suspect]
     Indication: OSTEOARTHRITIS
     Dosage: 250 MG, DAILY
     Route: 048
  2. CELEBREX [Suspect]
     Indication: SCOLIOSIS
  3. DILTIAZEM [Concomitant]
     Indication: HYPERTENSION
     Dosage: 240 MG, 1X/DAY
  4. LISINOPRIL [Concomitant]
     Indication: HYPERTENSION
     Dosage: ^20/25MG^ DAILY

REACTIONS (1)
  - Tremor [Unknown]
